FAERS Safety Report 10576600 (Version 1)
Quarter: 2014Q4

REPORT INFORMATION
  Report Type: Spontaneous
  Country: US (occurrence: None)
  Receive Date: 20141110
  Receipt Date: 20141110
  Transmission Date: 20150529
  Serious: Yes (Hospitalization, Other)
  Sender: FDA-Public Use
  Company Number: None

PATIENT
  Age: 41 Year
  Sex: Female
  Weight: 54.43 kg

DRUGS (1)
  1. LYRICA [Suspect]
     Active Substance: PREGABALIN
     Indication: TRIGEMINAL NEURALGIA
     Dosage: 2 PER DAY
     Route: 048
     Dates: start: 20140601, end: 20140930

REACTIONS (3)
  - Suicidal ideation [None]
  - Suicide attempt [None]
  - Panic attack [None]

NARRATIVE: CASE EVENT DATE: 20141030
